FAERS Safety Report 12369082 (Version 2)
Quarter: 2016Q3

REPORT INFORMATION
  Report Type: Spontaneous
  Country: CN (occurrence: CN)
  Receive Date: 20160513
  Receipt Date: 20160714
  Transmission Date: 20161109
  Serious: Yes (Death, Other)
  Sender: FDA-Public Use
  Company Number: CN-FERRINGPH-2016FE02037

PATIENT

DRUGS (1)
  1. PROPESS [Suspect]
     Active Substance: DINOPROSTONE
     Indication: INDUCTION OF CERVIX RIPENING
     Dosage: 10 MG, ONCE/SINGLE
     Route: 067
     Dates: start: 20160422, end: 20160423

REACTIONS (3)
  - Disseminated intravascular coagulation [Fatal]
  - Postpartum haemorrhage [Fatal]
  - Anaphylactoid syndrome of pregnancy [Fatal]

NARRATIVE: CASE EVENT DATE: 20160423
